FAERS Safety Report 25724893 (Version 2)
Quarter: 2025Q3

REPORT INFORMATION
  Report Type: Report from Study
  Country: US (occurrence: US)
  Receive Date: 20250826
  Receipt Date: 20250905
  Transmission Date: 20251020
  Serious: No
  Sender: SANDOZ
  Company Number: US-SANDOZ-SDZ2025US059804

PATIENT
  Age: 56 Year
  Sex: Female

DRUGS (2)
  1. HYRIMOZ [Suspect]
     Active Substance: ADALIMUMAB-ADAZ
     Indication: Unevaluable event
     Dosage: 40 MG, Q2W
     Route: 058
     Dates: start: 20190101, end: 20250808
  2. HYRIMOZ [Suspect]
     Active Substance: ADALIMUMAB-ADAZ
     Indication: Unevaluable event
     Dosage: 40 MG, Q2W
     Route: 058
     Dates: start: 20190101, end: 20250808

REACTIONS (4)
  - Stress [Unknown]
  - Injection site pain [Unknown]
  - Pain in extremity [Unknown]
  - Product dose omission issue [Unknown]

NARRATIVE: CASE EVENT DATE: 20250810
